FAERS Safety Report 23601525 (Version 2)
Quarter: 2024Q3

REPORT INFORMATION
  Report Type: Report from Study
  Country: CA (occurrence: CA)
  Receive Date: 20240306
  Receipt Date: 20240711
  Transmission Date: 20241017
  Serious: Yes (Hospitalization, Other)
  Sender: HLS THERAPEUTICS
  Company Number: CA-HLS-202400651

PATIENT
  Age: 82 Year
  Sex: Female

DRUGS (7)
  1. CLOZARIL [Suspect]
     Active Substance: CLOZAPINE
     Indication: Schizoaffective disorder
     Dosage: 275 MG HS
     Route: 048
     Dates: start: 2001
  2. VITAMIN B6 [Concomitant]
     Active Substance: PYRIDOXINE HYDROCHLORIDE
     Indication: Tremor
     Dosage: IN THE MORNING
     Route: 065
  3. VITAMIN B6 [Concomitant]
     Active Substance: PYRIDOXINE HYDROCHLORIDE
     Indication: Tremor
     Route: 065
  4. VITAMIN B6 [Concomitant]
     Active Substance: PYRIDOXINE HYDROCHLORIDE
     Indication: Tremor
     Route: 065
     Dates: start: 202312
  5. LAMICTAL [Concomitant]
     Active Substance: LAMOTRIGINE
     Indication: Schizoaffective disorder
     Dosage: 37.5 MG AM AND HS
     Route: 065
  6. DONEPEZIL [Concomitant]
     Active Substance: DONEPEZIL\DONEPEZIL HYDROCHLORIDE
     Indication: Product used for unknown indication
     Route: 065
     Dates: start: 202102
  7. DONEPEZIL [Concomitant]
     Active Substance: DONEPEZIL\DONEPEZIL HYDROCHLORIDE
     Indication: Product used for unknown indication
     Route: 065
     Dates: start: 20210312

REACTIONS (13)
  - Dementia Alzheimer^s type [Unknown]
  - Abdominal adhesions [Unknown]
  - Burning sensation [Unknown]
  - Constipation [Not Recovered/Not Resolved]
  - COVID-19 [Recovered/Resolved]
  - Delusion [Unknown]
  - Abdominal discomfort [Unknown]
  - Faecaloma [Unknown]
  - Anaemia macrocytic [Recovering/Resolving]
  - Confusional state [Unknown]
  - Delirium [Unknown]
  - Tremor [Recovering/Resolving]
  - Tardive dyskinesia [Not Recovered/Not Resolved]

NARRATIVE: CASE EVENT DATE: 20190101
